FAERS Safety Report 8471085 (Version 3)
Quarter: 2014Q2

REPORT INFORMATION
  Report Type: Spontaneous
  Country: US (occurrence: US)
  Receive Date: 20120322
  Receipt Date: 20140507
  Transmission Date: 20141212
  Serious: Yes (Hospitalization)
  Sender: FDA-Public Use
  Company Number: US-BAYER-2012-024544

PATIENT
  Age: 33 Year
  Sex: Female
  Weight: 82.54 kg

DRUGS (16)
  1. YAZ [Suspect]
     Indication: ACNE
     Dosage: UNK
     Dates: start: 200709, end: 2008
  2. YAZ [Suspect]
     Indication: MENSTRUAL CYCLE MANAGEMENT
  3. YASMIN [Suspect]
     Indication: ACNE
     Dosage: UNK
     Dates: start: 200709, end: 2008
  4. YASMIN [Suspect]
     Indication: MENSTRUAL CYCLE MANAGEMENT
  5. OCELLA [Suspect]
     Indication: ACNE
     Dosage: UNK
     Dates: start: 2007, end: 2008
  6. OCELLA [Suspect]
     Indication: MENSTRUAL CYCLE MANAGEMENT
  7. PROMETHAZINE [Concomitant]
     Indication: NAUSEA
     Dosage: 25 MG, Q4HR, PRN
     Route: 048
     Dates: start: 20100607
  8. PROMETHAZINE [Concomitant]
     Indication: VOMITING
  9. NEXIUM [Concomitant]
     Dosage: 40 MG, QD
     Route: 048
     Dates: start: 20100607
  10. HYDROCODONE W/APAP [Concomitant]
     Dosage: 5MG/500 MG, 1 Q 4 H PRN
     Route: 048
     Dates: start: 20100607
  11. SUCRALFATE [Concomitant]
     Dosage: 1 G, TID
     Route: 048
  12. DICYCLOMINE [Concomitant]
     Indication: ABDOMINAL PAIN UPPER
     Dosage: 20 MG, QID PRN
     Route: 048
     Dates: start: 20100629
  13. RANITIDINE [Concomitant]
     Dosage: 150 MG, BID
     Route: 048
     Dates: start: 20100629
  14. PREVPAC [Concomitant]
     Dosage: TAKE USE AS DIRECTED FOR 14 DAYS
     Dates: start: 20100614
  15. ONDANSETRON [Concomitant]
     Dosage: 8 MG, DISSOLVE ONE TABLET IN MOUTH Q 8 H PRN
     Route: 048
     Dates: start: 20100714
  16. HYDROMORPHONE [Concomitant]
     Dosage: 2 MG, Q4HR
     Route: 048
     Dates: start: 20100713

REACTIONS (7)
  - Cholecystitis infective [None]
  - Cholelithiasis [None]
  - Pain [None]
  - General physical health deterioration [None]
  - Injury [None]
  - Emotional distress [None]
  - Anxiety [None]
